FAERS Safety Report 13600885 (Version 1)
Quarter: 2017Q2

REPORT INFORMATION
  Report Type: Spontaneous
  Country: IN (occurrence: IN)
  Receive Date: 20170601
  Receipt Date: 20170601
  Transmission Date: 20170830
  Serious: Yes (Other)
  Sender: FDA-Public Use
  Company Number: IN-STRIDES ARCOLAB LIMITED-2017SP008932

PATIENT

DRUGS (4)
  1. METRONIDAZOLE. [Suspect]
     Active Substance: METRONIDAZOLE
     Indication: DIARRHOEA
  2. METRONIDAZOLE. [Suspect]
     Active Substance: METRONIDAZOLE
     Indication: ABDOMINAL PAIN
     Dosage: UNK, UNKNOWN
     Route: 065
  3. NORFLOXACIN [Suspect]
     Active Substance: NORFLOXACIN
     Indication: ABDOMINAL PAIN
     Dosage: UNK, UNKNOWN
     Route: 065
  4. NORFLOXACIN [Suspect]
     Active Substance: NORFLOXACIN
     Indication: DIARRHOEA

REACTIONS (3)
  - Rash generalised [Recovered/Resolved]
  - Rash erythematous [Recovered/Resolved]
  - Fixed eruption [Recovered/Resolved]
